FAERS Safety Report 6483157-0 (Version None)
Quarter: 2009Q4

REPORT INFORMATION
  Report Type: 
  Country: None (occurrence: None)
  Receive Date: 20091123
  Receipt Date: 20090820
  Transmission Date: 20100525
  Serious: No
  Sender: FDA-Public Use
  Company Number: 8050524

PATIENT
  Age: 56 Year
  Sex: Female
  Weight: 71.8 kg

DRUGS (9)
  1. CIMZIA [Suspect]
     Indication: RHEUMATOID ARTHRITIS
     Dosage: 400 MG SC
     Route: 058
     Dates: start: 20090803
  2. CIMZIA [Suspect]
     Indication: RHEUMATOID ARTHRITIS
     Dosage: 400 MG SC
     Route: 058
     Dates: start: 20090812
  3. IMURAN [Concomitant]
  4. PREDNISONE [Concomitant]
  5. NABUMETONE [Concomitant]
  6. NEURONTIN [Concomitant]
  7. PRAVASTATIN [Concomitant]
  8. PREVACID [Concomitant]
  9. BONIVA [Concomitant]

REACTIONS (2)
  - HYPOAESTHESIA ORAL [None]
  - PARAESTHESIA ORAL [None]
